FAERS Safety Report 7911784-X (Version None)
Quarter: 2011Q4

REPORT INFORMATION
  Report Type: 
  Country: None (occurrence: None)
  Receive Date: 20111114
  Receipt Date: 20111114
  Transmission Date: 20120403
  Serious: No
  Sender: FDA-Public Use
  Company Number: None

PATIENT
  Age: 80 Year
  Sex: Male
  Weight: 77.11 kg

DRUGS (1)
  1. VIIBRYD [Suspect]
     Indication: DEPRESSION
     Dates: start: 20110719, end: 20110731

REACTIONS (3)
  - DRUG INEFFECTIVE [None]
  - SLEEP DISORDER [None]
  - HEADACHE [None]
